FAERS Safety Report 15979598 (Version 1)
Quarter: 2019Q1

REPORT INFORMATION
  Report Type: Spontaneous
  Country: US (occurrence: US)
  Receive Date: 20190219
  Receipt Date: 20190219
  Transmission Date: 20190418
  Serious: No
  Sender: FDA-Public Use
  Company Number: US-PFIZER INC-2019062291

PATIENT
  Age: 33 Year
  Sex: Male

DRUGS (1)
  1. JUNIOR STRENGTH ADVIL [Suspect]
     Active Substance: IBUPROFEN
     Indication: HEADACHE
     Dosage: 4 DF, UNK

REACTIONS (3)
  - Product use issue [Unknown]
  - Abdominal distension [Unknown]
  - Flatulence [Unknown]
